FAERS Safety Report 22626287 (Version 1)
Quarter: 2023Q2

REPORT INFORMATION
  Report Type: Spontaneous
  Country: MY (occurrence: MY)
  Receive Date: 20230621
  Receipt Date: 20230621
  Transmission Date: 20230721
  Serious: Yes (Other)
  Sender: FDA-Public Use
  Company Number: MY-MENARINI-MY-MEN-088794

PATIENT
  Age: 61 Year
  Sex: Male

DRUGS (1)
  1. RANEXA [Suspect]
     Active Substance: RANOLAZINE
     Indication: Chest pain
     Dosage: 375 MG, BID
     Route: 048

REACTIONS (2)
  - Eye swelling [Recovered/Resolved]
  - Dyspnoea [Recovered/Resolved]
